FAERS Safety Report 6329662-9 (Version None)
Quarter: 2009Q3

REPORT INFORMATION
  Report Type: 
  Country: None (occurrence: None)
  Receive Date: 20090826
  Receipt Date: 20090812
  Transmission Date: 20100115
  Serious: Yes (Death, Hospitalization)
  Sender: FDA-Public Use
  Company Number: GB-MYLANLABS-2009S1014440

PATIENT
  Age: 54 Year
  Sex: Male

DRUGS (1)
  1. FELODIPINE [Suspect]
     Indication: DRUG USE FOR UNKNOWN INDICATION

REACTIONS (3)
  - HYPOTENSION [None]
  - METABOLIC ACIDOSIS [None]
  - OVERDOSE [None]
